FAERS Safety Report 11323862 (Version 1)
Quarter: 2015Q3

REPORT INFORMATION
  Report Type: Spontaneous
  Country: US (occurrence: None)
  Receive Date: 20150729
  Receipt Date: 20150729
  Transmission Date: 20151125
  Serious: Yes (Hospitalization)
  Sender: FDA-Public Use
  Company Number: None

PATIENT
  Age: 43 Year
  Sex: Female
  Weight: 74.8 kg

DRUGS (5)
  1. GABAPENTIN. [Concomitant]
     Active Substance: GABAPENTIN
  2. DAPAGLIFLOZIN 10MG FORXIGA, ASTRA ZENECA [Suspect]
     Active Substance: DAPAGLIFLOZIN
     Indication: TYPE 2 DIABETES MELLITUS
     Route: 048
  3. LANTUS [Concomitant]
     Active Substance: INSULIN GLARGINE
  4. HUMALOG [Concomitant]
     Active Substance: INSULIN LISPRO
  5. PAXIL [Concomitant]
     Active Substance: PAROXETINE HYDROCHLORIDE

REACTIONS (1)
  - Ketoacidosis [None]

NARRATIVE: CASE EVENT DATE: 20150725
